FAERS Safety Report 17525035 (Version 1)
Quarter: 2020Q1

REPORT INFORMATION
  Report Type: Spontaneous
  Country: BG (occurrence: BG)
  Receive Date: 20200311
  Receipt Date: 20200311
  Transmission Date: 20200409
  Serious: Yes (Hospitalization)
  Sender: FDA-Public Use
  Company Number: NVSC2020BG066958

PATIENT
  Age: 78 Year
  Sex: Female
  Weight: 59 kg

DRUGS (12)
  1. TRASTUZUMAB. [Suspect]
     Active Substance: TRASTUZUMAB
     Indication: BREAST CANCER
     Dosage: 600 MG, TIW
     Route: 058
     Dates: start: 20190821
  2. PERIOLIMEL N4E [Concomitant]
     Indication: NEUTROPENIA
     Route: 065
     Dates: start: 20190828, end: 20190828
  3. METHYLPREDNISOLON [Concomitant]
     Active Substance: METHYLPREDNISOLONE
     Indication: NEUTROPENIA
     Route: 065
     Dates: start: 20190828, end: 20190830
  4. DOCETAXEL. [Suspect]
     Active Substance: DOCETAXEL
     Indication: BREAST CANCER
     Dosage: MOST RECENT DOSE PRIOR TO THE EVENT: 21/AUG/2019 AND 11/SEP/2019
     Route: 042
     Dates: start: 20190821, end: 20190821
  5. CONCOR [Concomitant]
     Active Substance: BISOPROLOL FUMARATE
     Indication: PRODUCT USED FOR UNKNOWN INDICATION
     Route: 065
     Dates: start: 20130615
  6. LOPERAMID [Concomitant]
     Active Substance: LOPERAMIDE
     Indication: DIARRHOEA
     Route: 065
     Dates: start: 20190828, end: 20190830
  7. FILGRASTIM [Concomitant]
     Active Substance: FILGRASTIM
     Indication: NEUTROPENIA
     Route: 065
     Dates: start: 20190828, end: 20190829
  8. PERTUZUMAB. [Suspect]
     Active Substance: PERTUZUMAB
     Indication: BREAST CANCER
     Dosage: MOST RECENT DOSE PRIOR TO THE EVENT: 21/AUG/2019 AND 11/SEP/2019
     Route: 042
     Dates: start: 20190821, end: 20190821
  9. CEFTRIAXONE. [Concomitant]
     Active Substance: CEFTRIAXONE
     Indication: DIARRHOEA
     Route: 065
     Dates: start: 20190828, end: 20190830
  10. DEXAMETHAZONE [Concomitant]
     Active Substance: DEXAMETHASONE
     Indication: NEUTROPENIA
     Route: 065
     Dates: start: 20190920, end: 20190921
  11. FILGRASTIM [Concomitant]
     Active Substance: FILGRASTIM
     Dosage: UNK
     Route: 065
     Dates: start: 20190920, end: 20190920
  12. ENTEROL [Concomitant]
     Indication: DIARRHOEA
     Route: 065
     Dates: start: 20190828, end: 20190830

REACTIONS (4)
  - Neutropenia [Recovered/Resolved]
  - White blood cell count decreased [Recovered/Resolved]
  - Stomatitis [Recovered/Resolved]
  - Diarrhoea [Recovered/Resolved]

NARRATIVE: CASE EVENT DATE: 20190823
